FAERS Safety Report 24351020 (Version 1)
Quarter: 2024Q3

REPORT INFORMATION
  Report Type: Spontaneous
  Country: JP (occurrence: JP)
  Receive Date: 20240923
  Receipt Date: 20240923
  Transmission Date: 20241017
  Serious: Yes (Hospitalization, Other)
  Sender: GALDERMA
  Company Number: JP-GALDERMA-JP2024010085

PATIENT

DRUGS (24)
  1. NEMOLIZUMAB [Suspect]
     Active Substance: NEMOLIZUMAB
     Dosage: 60 MG/4 WEEKS
     Route: 058
     Dates: start: 20231107, end: 20231107
  2. NEMOLIZUMAB [Suspect]
     Active Substance: NEMOLIZUMAB
     Dosage: 60 MG/4 WEEKS
     Route: 058
     Dates: start: 20231205, end: 20231205
  3. NEMOLIZUMAB [Suspect]
     Active Substance: NEMOLIZUMAB
     Dosage: 60 MG/4 WEEKS
     Route: 058
     Dates: start: 20240109, end: 20240109
  4. NEMOLIZUMAB [Suspect]
     Active Substance: NEMOLIZUMAB
     Dosage: 60 MG/4 WEEKS
     Route: 058
     Dates: start: 20240206, end: 20240206
  5. NEMOLIZUMAB [Suspect]
     Active Substance: NEMOLIZUMAB
     Dosage: 60 MG/4 WEEKS
     Route: 058
     Dates: start: 20240305, end: 20240305
  6. NEMOLIZUMAB [Suspect]
     Active Substance: NEMOLIZUMAB
     Dosage: 60 MG/4 WEEKS
     Route: 058
     Dates: start: 20240402, end: 20240402
  7. NEMOLIZUMAB [Suspect]
     Active Substance: NEMOLIZUMAB
     Dosage: 60 MG/4 WEEKS
     Route: 058
     Dates: start: 20240430, end: 20240430
  8. NEMOLIZUMAB [Suspect]
     Active Substance: NEMOLIZUMAB
     Dosage: 60 MG/4 WEEKS
     Route: 058
     Dates: start: 20240528, end: 20240528
  9. NEMOLIZUMAB [Suspect]
     Active Substance: NEMOLIZUMAB
     Dosage: 60 MG/4 WEEKS
     Route: 058
     Dates: start: 20240802, end: 20240802
  10. ASPIRIN [Concomitant]
     Active Substance: ASPIRIN
     Indication: Angina pectoris
     Route: 048
  11. DOXAZOSIN MESYLATE [Concomitant]
     Active Substance: DOXAZOSIN MESYLATE
     Indication: Hypertension
     Dosage: UNK
     Route: 048
  12. EBASTINE [Concomitant]
     Active Substance: EBASTINE
     Indication: Dermatitis atopic
     Dosage: 10 MILLIGRAM
     Route: 048
  13. CHLORPHENIRAMINE MALEATE [Concomitant]
     Active Substance: CHLORPHENIRAMINE MALEATE
     Indication: Dermatitis atopic
     Dosage: 4 MILLIGRAM
     Route: 048
  14. CPG [ASCORBIC ACID;CALCIUM PANTOTHENATE] [Concomitant]
     Indication: Dermatitis atopic
     Route: 048
  15. PYRIDOXAL [Concomitant]
     Active Substance: PYRIDOXAL
     Indication: Dermatitis atopic
     Route: 048
  16. PANTETHINE [Concomitant]
     Active Substance: PANTETHINE
     Indication: Dermatitis atopic
     Route: 048
  17. CLOBETASONE BUTYRATE [Concomitant]
     Active Substance: CLOBETASONE BUTYRATE
     Indication: Dermatitis atopic
     Route: 061
  18. FLUFENAMIC ACID [Concomitant]
     Active Substance: FLUFENAMIC ACID
     Indication: Dermatitis atopic
     Route: 061
  19. MOIZERTO [Concomitant]
     Indication: Dermatitis atopic
     Route: 061
  20. FLUOCINONIDE [Concomitant]
     Active Substance: FLUOCINONIDE
     Indication: Dermatitis atopic
     Route: 061
  21. CROTAMITON [Concomitant]
     Active Substance: CROTAMITON
     Indication: Dermatitis atopic
     Route: 061
  22. RINDERON VG [Concomitant]
     Active Substance: BETAMETHASONE VALERATE\GENTAMICIN SULFATE
     Indication: Product used for unknown indication
     Route: 061
  23. SAHNE [Concomitant]
     Indication: Dermatitis atopic
     Route: 061
  24. METFORMIN HYDROCHLORIDE [Concomitant]
     Active Substance: METFORMIN HYDROCHLORIDE
     Indication: Type 2 diabetes mellitus
     Dosage: 500 MILLIGRAM
     Route: 048
     Dates: start: 202406

REACTIONS (1)
  - COVID-19 pneumonia [Recovering/Resolving]

NARRATIVE: CASE EVENT DATE: 20240614
